FAERS Safety Report 5132678-1 (Version None)
Quarter: 2006Q4

REPORT INFORMATION
  Report Type: 
  Country: None (occurrence: None)
  Receive Date: 20061019
  Receipt Date: 20061019
  Transmission Date: 20070319
  Serious: Yes (Hospitalization)
  Sender: FDA-Public Use
  Company Number: None

PATIENT
  Sex: Male
  Weight: 71.9 kg

DRUGS (18)
  1. FLUOROURACIL [Suspect]
     Dosage: 10864 MG
  2. BEVACIZUMAB (RHUMAB VEGF) [Suspect]
     Dosage: 780 MG
  3. LEUCOVORIN CALCIUM [Suspect]
     Dosage: 1552 MG
  4. ELOXATIN [Suspect]
     Dosage: 330 MG
  5. ASCORBIC ACID [Concomitant]
  6. CAPSAICIN 0.025% CREAM [Concomitant]
  7. DEXAMETHASONE 0.1/TOBRAMYC 0.3% [Concomitant]
  8. DOCUSATE [Concomitant]
  9. LACTULOSE [Concomitant]
  10. NON-VA ACETAMINOPHEN [Concomitant]
  11. SIMETHICONE [Concomitant]
  12. AMIODARONE HCL [Concomitant]
  13. ASPIRIN [Concomitant]
  14. FLUVASTATIN NA [Concomitant]
  15. HYDROCHLOROTHIAZIDE [Concomitant]
  16. IPRATROPIUM BROMIDE [Concomitant]
  17. LEVALBUTEROL TART [Concomitant]
  18. SALMETEROL [Concomitant]

REACTIONS (3)
  - NEUTROPHIL COUNT DECREASED [None]
  - PYREXIA [None]
  - WHITE BLOOD CELL COUNT DECREASED [None]
